FAERS Safety Report 4804482-2 (Version None)
Quarter: 2005Q4

REPORT INFORMATION
  Report Type: 
  Country: None (occurrence: None)
  Receive Date: 20051018
  Receipt Date: 20051018
  Transmission Date: 20060501
  Serious: Yes (Other)
  Sender: FDA-Public Use
  Company Number: None

PATIENT
  Age: 43 Year
  Sex: Male
  Weight: 104.7809 kg

DRUGS (1)
  1. OMALIZUMAB 375 MG [Suspect]
     Indication: ASTHMA
     Dosage: 375 MG ONCE SQ
     Route: 058
     Dates: start: 20050810, end: 20050810

REACTIONS (3)
  - SINUS OPERATION [None]
  - URTICARIA [None]
  - WHEEZING [None]
